FAERS Safety Report 10430163 (Version 1)
Quarter: 2014Q3

REPORT INFORMATION
  Report Type: Spontaneous
  Country: US (occurrence: US)
  Receive Date: 20140904
  Receipt Date: 20140904
  Transmission Date: 20150326
  Serious: Yes (Other)
  Sender: FDA-Public Use
  Company Number: US-BAYER-2014-128517

PATIENT
  Age: 23 Year
  Sex: Female

DRUGS (2)
  1. MIRENA [Suspect]
     Active Substance: LEVONORGESTREL
     Indication: CONTRACEPTION
     Dosage: 20 MCG/24HR, CONT
     Route: 015
     Dates: start: 2010
  2. ADDERALL [Concomitant]
     Active Substance: AMPHETAMINE ASPARTATE\AMPHETAMINE SULFATE\DEXTROAMPHETAMINE SACCHARATE\DEXTROAMPHETAMINE SULFATE
     Indication: STRESS
     Dosage: UNK
     Route: 048

REACTIONS (9)
  - Pregnancy with contraceptive device [None]
  - Genital haemorrhage [None]
  - Genital haemorrhage [None]
  - Hypomenorrhoea [None]
  - Menorrhagia [None]
  - Muscle spasms [None]
  - Vaginal haemorrhage [None]
  - Libido decreased [None]
  - Abdominal pain lower [None]

NARRATIVE: CASE EVENT DATE: 2010
